FAERS Safety Report 10707140 (Version 1)
Quarter: 2015Q1

REPORT INFORMATION
  Report Type: Spontaneous
  Country: US (occurrence: None)
  Receive Date: 20150112
  Receipt Date: 20150112
  Transmission Date: 20150721
  Serious: Yes (Disabling)
  Sender: FDA-Public Use
  Company Number: None

PATIENT
  Age: 58 Year
  Sex: Male
  Weight: 82.1 kg

DRUGS (1)
  1. MOXIFLOXACIN [Suspect]
     Active Substance: MOXIFLOXACIN
     Indication: DIVERTICULITIS
     Dosage: 1 PILL
     Route: 048
     Dates: start: 20150105, end: 20150106

REACTIONS (4)
  - Paraesthesia [None]
  - Neuropathy peripheral [None]
  - Hypoaesthesia [None]
  - Burning sensation [None]

NARRATIVE: CASE EVENT DATE: 20150106
